FAERS Safety Report 8057785 (Version 3)
Quarter: 2013Q1

REPORT INFORMATION
  Report Type: Spontaneous
  Country: US (occurrence: US)
  Receive Date: 20110728
  Receipt Date: 20130114
  Transmission Date: 20140127
  Serious: Yes (Hospitalization, Other)
  Sender: FDA-Public Use
  Company Number: US-BIOGENIDEC-2011BI026822

PATIENT
  Age: 51 Year
  Sex: Female

DRUGS (2)
  1. AVONEX [Suspect]
     Indication: MULTIPLE SCLEROSIS
     Route: 030
     Dates: start: 20040813, end: 2012
  2. AVONEX [Suspect]
     Indication: MULTIPLE SCLEROSIS
     Route: 030
     Dates: start: 2012

REACTIONS (10)
  - Knee arthroplasty [Recovered/Resolved]
  - Lipoma [Recovered/Resolved]
  - Abdominal pain upper [Not Recovered/Not Resolved]
  - Blood creatinine increased [Unknown]
  - Aphonia [Not Recovered/Not Resolved]
  - Multiple sclerosis relapse [Recovered/Resolved]
  - Anaemia [Not Recovered/Not Resolved]
  - Aspartate aminotransferase increased [Unknown]
  - Neutropenia [Not Recovered/Not Resolved]
  - Hepatic enzyme increased [Not Recovered/Not Resolved]
